FAERS Safety Report 23093782 (Version 2)
Quarter: 2023Q4

REPORT INFORMATION
  Report Type: Spontaneous
  Country: US (occurrence: US)
  Receive Date: 20231023
  Receipt Date: 20231219
  Transmission Date: 20240109
  Serious: No
  Sender: FDA-Public Use
  Company Number: US-BEH-2023164524

PATIENT
  Age: 74 Year
  Sex: Female
  Weight: 81.65 kg

DRUGS (2)
  1. HAEGARDA [Suspect]
     Active Substance: HUMAN C1-ESTERASE INHIBITOR
     Indication: Hereditary angioedema
     Dosage: 6000 INTERNATIONAL UNIT, BIW
     Route: 058
     Dates: start: 201708
  2. HAEGARDA [Suspect]
     Active Substance: HUMAN C1-ESTERASE INHIBITOR
     Indication: Prophylaxis
     Dosage: 5000 INTERNATIONAL UNIT/KILOGRAM
     Route: 065

REACTIONS (4)
  - Cyst [Unknown]
  - Injection site pain [Unknown]
  - Infusion site swelling [Unknown]
  - Lack of infusion site rotation [Unknown]

NARRATIVE: CASE EVENT DATE: 20231001
